FAERS Safety Report 6734634-6 (Version None)
Quarter: 2010Q2

REPORT INFORMATION
  Report Type: 
  Country: None (occurrence: None)
  Receive Date: 20100519
  Receipt Date: 20100507
  Transmission Date: 20101027
  Serious: Yes (Life-Threatening, Congenital Anomaly, Other)
  Sender: FDA-Public Use
  Company Number: 006392

PATIENT
  Sex: Female

DRUGS (3)
  1. KEPPRA [Suspect]
     Indication: CONVULSION
     Dosage: 500 MG BID TRANSPLACENTAL
     Route: 064
     Dates: end: 20100404
  2. TYLENOL (CAPLET) [Suspect]
     Indication: HEADACHE
     Dosage: TRANSPLACENTAL
     Route: 064
  3. PRENATAL VITAMINS [Concomitant]

REACTIONS (3)
  - ANENCEPHALY [None]
  - INTRA-UTERINE DEATH [None]
  - MATERNAL DRUGS AFFECTING FOETUS [None]
